FAERS Safety Report 4635531-2 (Version None)
Quarter: 2005Q2

REPORT INFORMATION
  Report Type: 
  Country: None (occurrence: None)
  Receive Date: 20050414
  Receipt Date: 20050117
  Transmission Date: 20051028
  Serious: Yes (Hospitalization)
  Sender: FDA-Public Use
  Company Number: US-MERCK-0501USA02639

PATIENT
  Age: 63 Year
  Sex: Female
  Weight: 54 kg

DRUGS (13)
  1. INVANZ [Suspect]
     Indication: INFECTION PROPHYLAXIS
     Route: 042
     Dates: start: 20050105, end: 20050110
  2. RENAGEL [Concomitant]
     Indication: DIALYSIS
     Route: 048
  3. SPIRIVA [Concomitant]
     Indication: RESPIRATORY THERAPY
     Route: 065
  4. COREG [Concomitant]
     Indication: CARDIAC FAILURE CONGESTIVE
     Route: 048
  5. BACTRIM DS [Concomitant]
     Indication: NOCARDIOSIS
     Route: 048
  6. LISINOPRIL [Concomitant]
     Indication: CARDIAC FAILURE CONGESTIVE
     Route: 048
  7. FOLIC ACID [Concomitant]
     Route: 048
  8. AMIODARONE [Concomitant]
     Indication: CARDIAC FAILURE CONGESTIVE
     Route: 048
  9. SYNTHROID [Concomitant]
     Indication: HYPOTHYROIDISM
     Route: 048
  10. OXYCONTIN [Concomitant]
     Indication: PAIN
     Route: 048
     Dates: end: 20050101
  11. ANZEMET [Concomitant]
     Indication: NAUSEA
     Route: 042
     Dates: start: 20050107, end: 20050107
  12. VANCOMYCIN [Concomitant]
     Indication: INFECTION PROPHYLAXIS
     Route: 065
     Dates: start: 20050101, end: 20050111
  13. [THERAPY UNSPECIFIED] [Concomitant]
     Indication: DIALYSIS
     Route: 048

REACTIONS (10)
  - AGITATION [None]
  - BLOOD CREATININE INCREASED [None]
  - BLOOD GLUCOSE ABNORMAL [None]
  - CONFUSIONAL STATE [None]
  - DELIRIUM [None]
  - HALLUCINATION [None]
  - HYPOGLYCAEMIA [None]
  - LETHARGY [None]
  - MENTAL STATUS CHANGES [None]
  - PLEURAL EFFUSION [None]
